FAERS Safety Report 5097844-2 (Version None)
Quarter: 2006Q3

REPORT INFORMATION
  Report Type: 
  Country: None (occurrence: None)
  Receive Date: 20060905
  Receipt Date: 20060823
  Transmission Date: 20061208
  Serious: No
  Sender: FDA-Public Use
  Company Number: 2006-145909-NL

PATIENT
  Age: 40 Year
  Sex: Female

DRUGS (2)
  1. MIRTAZAPINE [Suspect]
     Indication: PANIC ATTACK
     Dosage: 30 MG ORAL
     Route: 048
     Dates: start: 20060619
  2. MIRTAZAPINE [Suspect]
     Indication: RESTLESSNESS
     Dosage: 30 MG ORAL
     Route: 048
     Dates: start: 20060619

REACTIONS (4)
  - ARRHYTHMIA [None]
  - FLUID RETENTION [None]
  - MITRAL VALVE PROLAPSE [None]
  - WEIGHT INCREASED [None]
